FAERS Safety Report 16366949 (Version 1)
Quarter: 2019Q3

REPORT INFORMATION
  Report Type: Spontaneous
  Country: US (occurrence: US)
  Receive Date: 20190528
  Receipt Date: 20190528
  Transmission Date: 20191004
  Serious: Yes (Congenital Anomaly, Other)
  Sender: FDA-Public Use
  Company Number: None

PATIENT
  Age: 35 Year
  Sex: Female
  Weight: 84.15 kg

DRUGS (2)
  1. CARAFATE [Concomitant]
     Active Substance: SUCRALFATE
  2. PROTONIX [Suspect]
     Active Substance: PANTOPRAZOLE SODIUM
     Indication: POST PROCEDURAL HAEMORRHAGE
     Route: 048
     Dates: start: 20180706

REACTIONS (2)
  - Exposure during pregnancy [None]
  - Anembryonic gestation [None]

NARRATIVE: CASE EVENT DATE: 20190509
